FAERS Safety Report 6443913-1 (Version None)
Quarter: 2009Q4

REPORT INFORMATION
  Report Type: 
  Country: None (occurrence: None)
  Receive Date: 20091113
  Receipt Date: 20091102
  Transmission Date: 20100525
  Serious: No
  Sender: FDA-Public Use
  Company Number: 002196

PATIENT
  Sex: Female
  Weight: 49 kg

DRUGS (4)
  1. ROTIGOTINE (ROTIGOTINE) [Suspect]
     Dosage: 16 MG 1X/24 HOURS, 80 CM2
     Dates: start: 20040621
  2. CARBILEV [Concomitant]
  3. AMANTADINE [Concomitant]
  4. COMTAN [Concomitant]

REACTIONS (2)
  - GENERAL PHYSICAL HEALTH DETERIORATION [None]
  - MALAISE [None]
